FAERS Safety Report 20145306 (Version 1)
Quarter: 2021Q4

REPORT INFORMATION
  Report Type: Spontaneous
  Country: HU (occurrence: HU)
  Receive Date: 20211203
  Receipt Date: 20211203
  Transmission Date: 20220303
  Serious: Yes (Death)
  Sender: FDA-Public Use
  Company Number: HU-BoehringerIngelheim-2021-BI-141533

PATIENT
  Sex: Female

DRUGS (1)
  1. OFEV [Suspect]
     Active Substance: NINTEDANIB
     Indication: Interstitial lung disease
     Dates: start: 20190110

REACTIONS (2)
  - Cardiomyopathy [Fatal]
  - Lung diffusion test decreased [Recovered/Resolved]

NARRATIVE: CASE EVENT DATE: 20200101
